FAERS Safety Report 9650853 (Version 1)
Quarter: 2013Q4

REPORT INFORMATION
  Report Type: Spontaneous
  Country: US (occurrence: US)
  Receive Date: 20131029
  Receipt Date: 20131029
  Transmission Date: 20140711
  Serious: No
  Sender: FDA-Public Use
  Company Number: US-009507513-1310USA012483

PATIENT
  Sex: Male

DRUGS (5)
  1. JANUVIA [Suspect]
     Indication: GLUCOSE TOLERANCE IMPAIRED
     Dosage: 100 MG, QD
     Route: 048
     Dates: start: 20131015
  2. JANUVIA [Suspect]
     Indication: GLUCOSE TOLERANCE IMPAIRED
     Dosage: UNK
  3. METFORMIN HYDROCHLORIDE [Concomitant]
  4. LANOXIN [Concomitant]
  5. COUMADIN [Concomitant]

REACTIONS (1)
  - Blood glucose increased [Not Recovered/Not Resolved]
